FAERS Safety Report 5844068-4 (Version None)
Quarter: 2008Q3

REPORT INFORMATION
  Report Type: 
  Country: None (occurrence: None)
  Receive Date: 20080813
  Receipt Date: 20080805
  Transmission Date: 20090109
  Serious: Yes (Death)
  Sender: FDA-Public Use
  Company Number: US-WYE-H05247208

PATIENT
  Age: 44 Year
  Sex: Female

DRUGS (1)
  1. EFFEXOR [Suspect]
     Dosage: UNKNOWN

REACTIONS (2)
  - DRUG WITHDRAWAL SYNDROME [None]
  - HYPERTENSION [None]
